FAERS Safety Report 24073420 (Version 1)
Quarter: 2024Q3

REPORT INFORMATION
  Report Type: Spontaneous
  Country: ES (occurrence: ES)
  Receive Date: 20240710
  Receipt Date: 20240710
  Transmission Date: 20241017
  Serious: Yes (Other)
  Sender: RISING PHARMACEUTICALS
  Company Number: ES-RISINGPHARMA-ES-2024RISLIT00229

PATIENT
  Age: 82 Year
  Sex: Female

DRUGS (7)
  1. CAPECITABINE [Suspect]
     Active Substance: CAPECITABINE
     Indication: Adjuvant therapy
     Route: 065
  2. INDAPAMIDE [Concomitant]
     Active Substance: INDAPAMIDE
     Indication: Pituitary tumour benign
     Route: 065
  3. SIMVASTATIN [Concomitant]
     Active Substance: SIMVASTATIN
     Indication: Pituitary tumour benign
     Route: 065
  4. APIXABAN [Concomitant]
     Active Substance: APIXABAN
     Indication: Pituitary tumour benign
     Route: 065
  5. LORMETAZEPAM [Concomitant]
     Active Substance: LORMETAZEPAM
     Indication: Pituitary tumour benign
     Route: 065
  6. OMEPRAZOLE [Concomitant]
     Active Substance: OMEPRAZOLE
     Indication: Pituitary tumour benign
     Route: 065
  7. OXALIPLATIN [Concomitant]
     Active Substance: OXALIPLATIN
     Indication: Adjuvant therapy
     Route: 065

REACTIONS (4)
  - Thrombotic microangiopathy [Unknown]
  - Renal impairment [Recovering/Resolving]
  - Diarrhoea [Unknown]
  - Alopecia [Unknown]
